FAERS Safety Report 8352273-0 (Version None)
Quarter: 2012Q2

REPORT INFORMATION
  Report Type: 
  Country: None (occurrence: None)
  Receive Date: 20120511
  Receipt Date: 20120503
  Transmission Date: 20120825
  Serious: Yes (Death)
  Sender: FDA-Public Use
  Company Number: US-CELGENEUS-163-21660-12041674

PATIENT
  Sex: Female

DRUGS (2)
  1. ABRAXANE [Suspect]
     Route: 041
     Dates: start: 20120207, end: 20120207
  2. ABRAXANE [Suspect]
     Dosage: 159 MILLIGRAM
     Route: 041
     Dates: start: 20120110, end: 20120110

REACTIONS (1)
  - PANCREATIC CARCINOMA [None]
